FAERS Safety Report 8835195 (Version 3)
Quarter: 2013Q4

REPORT INFORMATION
  Report Type: Spontaneous
  Country: US (occurrence: US)
  Receive Date: 20121011
  Receipt Date: 20131008
  Transmission Date: 20140711
  Serious: Yes (Other)
  Sender: FDA-Public Use
  Company Number: US-PFIZER INC-2012250134

PATIENT
  Age: 65 Year
  Sex: Male

DRUGS (13)
  1. SUTENT [Suspect]
     Indication: METASTATIC RENAL CELL CARCINOMA
     Dosage: 50 MG, DAILY
     Dates: start: 201202
  2. SUTENT [Suspect]
     Indication: RENAL CELL CARCINOMA STAGE IV
     Dosage: 50 MG DAILY, CYCLIC (4 WKS ON 2 WKS OFF)
     Route: 048
     Dates: start: 201201
  3. SUTENT [Suspect]
     Dosage: 50 MG, UNK
     Dates: start: 20130222
  4. FENTANYL [Concomitant]
     Indication: BREAKTHROUGH PAIN
     Dosage: UNK
  5. VICODIN [Concomitant]
     Indication: BREAKTHROUGH PAIN
  6. LISINOPRIL [Concomitant]
     Dosage: 10 MG, DAILY
  7. TERAZOSIN HYDROCHLORIDE [Concomitant]
     Dosage: 2 MG, DAILY AT HS
  8. HYDROCODONE W/ACETAMINOPHEN [Concomitant]
     Dosage: UNK, 1 Q 6 HR PRN
  9. ASPIR-81 [Concomitant]
     Dosage: UNK
  10. ATIVAN [Concomitant]
     Dosage: UNK
  11. FLOMAX [Concomitant]
     Dosage: UNK
  12. METOPROLOL SUCCINATE ER [Concomitant]
     Dosage: UNK
  13. OXYCODONE HYDROCHLORIDE [Concomitant]
     Dosage: UNK

REACTIONS (6)
  - Cardiac flutter [Unknown]
  - Hair colour changes [Unknown]
  - Dysgeusia [Unknown]
  - Fatigue [Unknown]
  - Flatulence [Unknown]
  - Ejection fraction abnormal [Unknown]
